FAERS Safety Report 26012545 (Version 1)
Quarter: 2025Q4

REPORT INFORMATION
  Report Type: Spontaneous
  Country: US (occurrence: US)
  Receive Date: 20251107
  Receipt Date: 20251107
  Transmission Date: 20260118
  Serious: No
  Sender: ROCHE
  Company Number: US-ROCHE-10000427250

PATIENT
  Sex: Male

DRUGS (1)
  1. XOLAIR [Suspect]
     Active Substance: OMALIZUMAB
     Indication: Asthma
     Dosage: DOSE: 75 MG, 0.5ML, FREQUENCY: INJECT A TOTAL OF 375 MG SUBCUTANEOUSLY EVERY 14 DAYS
     Route: 058

REACTIONS (2)
  - Drug ineffective [Unknown]
  - No adverse event [Unknown]
